FAERS Safety Report 8469782-6 (Version None)
Quarter: 2012Q2

REPORT INFORMATION
  Report Type: 
  Country: None (occurrence: None)
  Receive Date: 20120626
  Receipt Date: 20120622
  Transmission Date: 20120825
  Serious: Yes (Hospitalization)
  Sender: FDA-Public Use
  Company Number: DE-MERCK-1204DEU00069

PATIENT
  Age: 52 Year
  Sex: Female
  Weight: 54 kg

DRUGS (5)
  1. LAROPIPRANT AND NIACIN [Suspect]
     Indication: HYPERLIPIDAEMIA
     Route: 048
     Dates: start: 20110708, end: 20110701
  2. COLESEVELAM HYDROCHLORIDE [Suspect]
     Indication: HYPERLIPIDAEMIA
     Route: 048
     Dates: start: 20110530, end: 20110707
  3. EZETIMIBE [Suspect]
     Indication: HYPERLIPIDAEMIA
     Route: 048
     Dates: start: 20100101, end: 20100101
  4. ATORVASTATIN [Suspect]
     Indication: HYPERLIPIDAEMIA
     Route: 048
     Dates: start: 20080101, end: 20080101
  5. ZOCOR [Suspect]
     Indication: HYPERLIPIDAEMIA
     Route: 048
     Dates: start: 20020101, end: 20050101

REACTIONS (9)
  - MUSCULAR WEAKNESS [None]
  - MYALGIA [None]
  - NAUSEA [None]
  - CORONARY ARTERY DISEASE [None]
  - INFLUENZA LIKE ILLNESS [None]
  - ARTHRALGIA [None]
  - ABDOMINAL PAIN [None]
  - PERIPHERAL ARTERIAL OCCLUSIVE DISEASE [None]
  - MUSCLE SPASMS [None]
